FAERS Safety Report 9426615 (Version 1)
Quarter: 2013Q3

REPORT INFORMATION
  Report Type: Spontaneous
  Country: US (occurrence: US)
  Receive Date: 20130730
  Receipt Date: 20130730
  Transmission Date: 20140515
  Serious: No
  Sender: FDA-Public Use
  Company Number: US-PFIZER INC-2013219924

PATIENT
  Age: 72 Year
  Sex: Female
  Weight: 62.59 kg

DRUGS (4)
  1. SUTENT [Suspect]
     Indication: NEOPLASM MALIGNANT
     Dosage: UNK
     Dates: start: 20130719
  2. NIFEDIPINE [Concomitant]
     Indication: HYPERTENSION
     Dosage: 90 MG, UNK
  3. BENAZEPRIL [Concomitant]
     Indication: HYPERTENSION
     Dosage: 40 MG, UNK
  4. ATENOLOL [Concomitant]
     Indication: HYPERTENSION
     Dosage: 100 MG, UNK

REACTIONS (3)
  - Ear disorder [Unknown]
  - Ear pain [Unknown]
  - Ear infection [Unknown]
